FAERS Safety Report 14101798 (Version 1)
Quarter: 2017Q4

REPORT INFORMATION
  Report Type: Spontaneous
  Country: US (occurrence: US)
  Receive Date: 20171018
  Receipt Date: 20171018
  Transmission Date: 20180321
  Serious: Yes (Disabling, Other)
  Sender: FDA-Public Use
  Company Number: None

PATIENT
  Age: 20 Year
  Sex: Male
  Weight: 54 kg

DRUGS (1)
  1. HALOPERIDOL DECAN 50MG/ML AMP MFR: BIBER  INJECT: 100MG (2ML) MONTHLY [Suspect]
     Active Substance: HALOPERIDOL DECANOATE
     Indication: MANIA
     Dosage: ?          QUANTITY:2 INJECTION(S);OTHER FREQUENCY:MONTHLY;?
     Route: 030

REACTIONS (13)
  - Feeling abnormal [None]
  - Dizziness [None]
  - Poisoning [None]
  - Dysphemia [None]
  - Disturbance in attention [None]
  - Gait inability [None]
  - Anxiety [None]
  - Communication disorder [None]
  - Sleep disorder [None]
  - Head discomfort [None]
  - Feeling drunk [None]
  - Disorientation [None]
  - Speech disorder [None]

NARRATIVE: CASE EVENT DATE: 20170215
